FAERS Safety Report 5624262-8 (Version None)
Quarter: 2008Q1

REPORT INFORMATION
  Report Type: 
  Country: None (occurrence: None)
  Receive Date: 20080208
  Receipt Date: 20080208
  Transmission Date: 20080703
  Serious: Yes (Hospitalization)
  Sender: FDA-Public Use
  Company Number: None

PATIENT
  Age: 53 Year
  Sex: Male
  Weight: 65 kg

DRUGS (5)
  1. CCI-779 (TEMSIROLIMUS) [Suspect]
     Indication: MULTIPLE MYELOMA
     Dosage: 25MG/M2 WEEKLY
     Dates: start: 20080128
  2. VELCADE [Suspect]
     Indication: MULTIPLE MYELOMA
     Dosage: 1.3MG/M2 WEEKLY FOR 4
     Dates: start: 20080128
  3. LEVAQUIN [Concomitant]
  4. VITAMIN CAP [Concomitant]
  5. VALTREX [Concomitant]

REACTIONS (7)
  - BACTERAEMIA [None]
  - FATIGUE [None]
  - HEADACHE [None]
  - MYALGIA [None]
  - STREPTOCOCCAL INFECTION [None]
  - URINARY TRACT INFECTION [None]
  - URINARY TRACT INFECTION STAPHYLOCOCCAL [None]
